FAERS Safety Report 4662377-1 (Version None)
Quarter: 2005Q2

REPORT INFORMATION
  Report Type: 
  Country: None (occurrence: None)
  Receive Date: 20050512
  Receipt Date: 20050425
  Transmission Date: 20051028
  Serious: Yes (Hospitalization)
  Sender: FDA-Public Use
  Company Number: US_030896992

PATIENT
  Age: 18 Year
  Sex: Male

DRUGS (3)
  1. STRATTERA [Suspect]
     Indication: ATTENTION DEFICIT/HYPERACTIVITY DISORDER
     Dosage: 180 MG DAY
  2. ZOLOFT [Concomitant]
  3. CONCERTA [Concomitant]

REACTIONS (12)
  - ABNORMAL BEHAVIOUR [None]
  - AFFECT LABILITY [None]
  - AGGRESSION [None]
  - ANGER [None]
  - CORNEAL REFLEX DECREASED [None]
  - DRUG INTERACTION [None]
  - EYE MOVEMENT DISORDER [None]
  - IMPAIRED WORK ABILITY [None]
  - IRRITABILITY [None]
  - MOOD ALTERED [None]
  - PRESCRIBED OVERDOSE [None]
  - SUICIDAL IDEATION [None]
